FAERS Safety Report 6502613-X (Version None)
Quarter: 2009Q4

REPORT INFORMATION
  Report Type: 
  Country: None (occurrence: None)
  Receive Date: 20091127
  Receipt Date: 20090205
  Transmission Date: 20100525
  Serious: Yes (Other)
  Sender: FDA-Public Use
  Company Number: WAES 0902USA00994

PATIENT
  Age: 80 Year
  Sex: Female

DRUGS (2)
  1. FOSAMAX [Suspect]
     Indication: BONE DENSITY DECREASED
     Dosage: 70 MG/WKY/PO
     Route: 048
     Dates: start: 20041103, end: 20080630
  2. FOSAMAX [Suspect]
     Indication: OSTEOPOROSIS
     Dosage: 70 MG/WKY/PO
     Route: 048
     Dates: start: 20041103, end: 20080630

REACTIONS (9)
  - DRUG HYPERSENSITIVITY [None]
  - JOINT SWELLING [None]
  - MASTICATION DISORDER [None]
  - MOUTH ULCERATION [None]
  - ORAL TORUS [None]
  - OSTEONECROSIS [None]
  - RESORPTION BONE INCREASED [None]
  - VIRAL INFECTION [None]
  - WEIGHT DECREASED [None]
